FAERS Safety Report 12296042 (Version 2)
Quarter: 2016Q2

REPORT INFORMATION
  Report Type: Spontaneous
  Country: SE (occurrence: SE)
  Receive Date: 20160422
  Receipt Date: 20160601
  Transmission Date: 20160815
  Serious: Yes (Hospitalization, Other)
  Sender: FDA-Public Use
  Company Number: SE-AMGEN-SWESP2016050696

PATIENT
  Age: 80 Year
  Sex: Female
  Weight: 55 kg

DRUGS (5)
  1. PREDNISOLONE. [Concomitant]
     Active Substance: PREDNISOLONE
     Dosage: 10 MG- 5MG X1
     Dates: start: 2013
  2. NEULASTA [Suspect]
     Active Substance: PEGFILGRASTIM
     Indication: BONE MARROW FAILURE
     Dosage: UNK, QMO
     Route: 058
     Dates: start: 201502, end: 201512
  3. NEULASTA [Suspect]
     Active Substance: PEGFILGRASTIM
     Indication: MYELODYSPLASTIC SYNDROME
  4. PARACETAMOL [Concomitant]
     Active Substance: ACETAMINOPHEN
     Indication: PAIN
     Dosage: 1 G X 3
     Route: 048
     Dates: start: 2013
  5. GABAPENTIN. [Concomitant]
     Active Substance: GABAPENTIN
     Dosage: 300 MG, X2 -X1
     Dates: start: 2013

REACTIONS (12)
  - Cardiac failure [Recovered/Resolved]
  - Confusional state [Recovered/Resolved]
  - Neutrophil count decreased [Unknown]
  - Abdominal pain [Recovered/Resolved]
  - Dyspnoea [Recovered/Resolved]
  - Rhinitis [Recovered/Resolved]
  - Fluid retention [Recovering/Resolving]
  - Off label use [Unknown]
  - Condition aggravated [Recovered/Resolved]
  - Muscular weakness [Recovering/Resolving]
  - Bone pain [Recovered/Resolved]
  - Headache [Recovering/Resolving]

NARRATIVE: CASE EVENT DATE: 2015
